FAERS Safety Report 6689422-6 (Version None)
Quarter: 2010Q2

REPORT INFORMATION
  Report Type: 
  Country: None (occurrence: None)
  Receive Date: 20100420
  Receipt Date: 20100416
  Transmission Date: 20101027
  Serious: Yes (Hospitalization)
  Sender: FDA-Public Use
  Company Number: US-BRISTOL-MYERS SQUIBB COMPANY-15067218

PATIENT
  Age: 51 Year
  Sex: Female
  Weight: 88 kg

DRUGS (4)
  1. IXEMPRA KIT [Suspect]
     Indication: BREAST CANCER
     Dosage: INTERRUPTED ON 30MAR10
     Route: 042
     Dates: start: 20100216
  2. CYTOXAN [Suspect]
     Indication: BREAST CANCER
     Dosage: INTERRUPTED ON 19JAN10
     Route: 042
     Dates: start: 20091109, end: 20100119
  3. ADRIAMYCIN PFS [Suspect]
     Indication: BREAST CANCER
     Dosage: INTERRUPTED ON 19JAN10
     Route: 042
     Dates: start: 20091109, end: 20100119
  4. ZOFRAN [Concomitant]
     Route: 042
     Dates: start: 20100412

REACTIONS (1)
  - PANCREATITIS ACUTE [None]
